FAERS Safety Report 7460233-7 (Version None)
Quarter: 2011Q2

REPORT INFORMATION
  Report Type: 
  Country: None (occurrence: None)
  Receive Date: 20110419
  Receipt Date: 20110415
  Transmission Date: 20111010
  Serious: Yes (Other)
  Sender: FDA-Public Use
  Company Number: AECAN201000420

PATIENT
  Age: 67 Year

DRUGS (4)
  1. GAMUNEX [Suspect]
  2. GAMUNEX [Suspect]
  3. GAMUNEX [Suspect]
     Indication: PRODUCT USED FOR UNKNOWN INDICATION
     Dosage: IV
     Route: 042
     Dates: start: 20060521, end: 20060521
  4. ALBUMINAR-25 [Suspect]
     Indication: PRODUCT USED FOR UNKNOWN INDICATION
     Dosage: IV
     Route: 042
     Dates: start: 20060523, end: 20060524

REACTIONS (1)
  - HEPATITIS B VIRUS TEST POSITIVE [None]
